FAERS Safety Report 7418476-4 (Version None)
Quarter: 2011Q2

REPORT INFORMATION
  Report Type: 
  Country: None (occurrence: None)
  Receive Date: 20110415
  Receipt Date: 20110406
  Transmission Date: 20111010
  Serious: Yes (Death, Hospitalization, Disabling, Other)
  Sender: FDA-Public Use
  Company Number: US-MERCK-1001USA00055

PATIENT
  Age: 71 Year
  Sex: Male

DRUGS (9)
  1. ALBUTEROL [Concomitant]
     Route: 065
  2. METOCLOPRAMIDE HYDROCHLORIDE [Concomitant]
     Route: 065
  3. FUROSEMIDE [Concomitant]
     Route: 065
  4. FOSAMAX [Suspect]
     Indication: OSTEOPOROSIS
     Route: 048
     Dates: start: 20050920, end: 20080201
  5. NITROGLYCERIN [Concomitant]
     Indication: CHEST PAIN
     Route: 065
     Dates: start: 20000101, end: 20090101
  6. VIAGRA [Concomitant]
     Indication: ERECTILE DYSFUNCTION
     Route: 065
     Dates: start: 20040101, end: 20090101
  7. FOSAMAX [Suspect]
     Route: 048
     Dates: start: 20080201, end: 20091229
  8. VERAPAMIL EXTENDED-RELEASE [Concomitant]
     Route: 048
     Dates: start: 20030101
  9. WARFARIN [Concomitant]
     Route: 065
     Dates: start: 20030101

REACTIONS (39)
  - ANAEMIA POSTOPERATIVE [None]
  - COR PULMONALE [None]
  - RENAL FAILURE ACUTE [None]
  - JAW FRACTURE [None]
  - CARDIAC DISORDER [None]
  - CARDIAC FAILURE CONGESTIVE [None]
  - GALLBLADDER DISORDER [None]
  - WEIGHT INCREASED [None]
  - STAPHYLOCOCCAL SEPSIS [None]
  - OEDEMA PERIPHERAL [None]
  - PULMONARY HYPERTENSION [None]
  - SLEEP APNOEA SYNDROME [None]
  - TENDONITIS [None]
  - HYPONATRAEMIA [None]
  - ATRIAL FIBRILLATION [None]
  - DEAFNESS BILATERAL [None]
  - PAIN [None]
  - POST PROCEDURAL HAEMORRHAGE [None]
  - SOMNOLENCE [None]
  - PANCREATITIS [None]
  - OSTEOARTHRITIS [None]
  - SYNCOPE [None]
  - ARTHROPATHY [None]
  - HYPOXIA [None]
  - CARDIAC FAILURE [None]
  - PEPTIC ULCER [None]
  - ATAXIA [None]
  - POLYARTHRITIS [None]
  - TOOTH DISORDER [None]
  - LOW TURNOVER OSTEOPATHY [None]
  - NEPHROLITHIASIS [None]
  - BACTERIAL INFECTION [None]
  - FEMUR FRACTURE [None]
  - FALL [None]
  - ASTHENIA [None]
  - LOSS OF CONSCIOUSNESS [None]
  - IMPAIRED SELF-CARE [None]
  - LACERATION [None]
  - HEAD INJURY [None]
